FAERS Safety Report 16810860 (Version 1)
Quarter: 2019Q3

REPORT INFORMATION
  Report Type: Spontaneous
  Country: US (occurrence: US)
  Receive Date: 20190916
  Receipt Date: 20190916
  Transmission Date: 20191005
  Serious: Yes (Hospitalization, Other)
  Sender: FDA-Public Use
  Company Number: US-GLAXOSMITHKLINE-US2019163773

PATIENT
  Sex: Female

DRUGS (3)
  1. ADVAIR HFA [Suspect]
     Active Substance: FLUTICASONE PROPIONATE\SALMETEROL XINAFOATE
     Indication: ASTHMA
     Dosage: 2 PUFF(S), BID
     Route: 065
  2. VENTOLIN HFA [Suspect]
     Active Substance: ALBUTEROL SULFATE
     Indication: COUGH
     Dosage: 2 PUFF(S), PRN
     Route: 065
  3. VENTOLIN HFA [Suspect]
     Active Substance: ALBUTEROL SULFATE
     Indication: WHEEZING

REACTIONS (6)
  - Thrombosis [Unknown]
  - Wheezing [Unknown]
  - Knee arthroplasty [Unknown]
  - Product dose omission [Unknown]
  - Wrong technique in product usage process [Unknown]
  - Cough [Unknown]
